FAERS Safety Report 23970003 (Version 1)
Quarter: 2024Q2

REPORT INFORMATION
  Report Type: Spontaneous
  Country: DE (occurrence: DE)
  Receive Date: 20240613
  Receipt Date: 20240613
  Transmission Date: 20240716
  Serious: Yes (Hospitalization, Other)
  Sender: FDA-Public Use
  Company Number: DE-DCGMA-24203415

PATIENT
  Age: 66 Year
  Sex: Male

DRUGS (4)
  1. MOMETASONE [Suspect]
     Active Substance: MOMETASONE
     Indication: Cutaneous T-cell lymphoma
     Dosage: ABOUT 1/2XD FOR YEARS
     Route: 065
  2. MIRTAZAPINE [Concomitant]
     Active Substance: MIRTAZAPINE
     Indication: Mood swings
     Dosage: 15 MILLIGRAM (FOR YEARS)
     Route: 048
  3. MOGAMULIZUMAB [Concomitant]
     Active Substance: MOGAMULIZUMAB
     Indication: Cutaneous T-cell lymphoma
     Dosage: 1MG/KG KG
     Route: 042
     Dates: start: 20200922
  4. LEVOTHYROXINE SODIUM [Concomitant]
     Active Substance: LEVOTHYROXINE SODIUM
     Indication: Hypothyroidism
     Dosage: 75 MICROGRAM (FOR YEARS)
     Route: 048

REACTIONS (1)
  - Adrenal insufficiency [Recovered/Resolved]

NARRATIVE: CASE EVENT DATE: 20201201
